FAERS Safety Report 14167928 (Version 1)
Quarter: 2017Q4

REPORT INFORMATION
  Report Type: Spontaneous
  Country: US (occurrence: US)
  Receive Date: 20171107
  Receipt Date: 20171107
  Transmission Date: 20180321
  Serious: No
  Sender: FDA-Public Use
  Company Number: US-SA-2017SA149059

PATIENT
  Age: 65 Year
  Sex: Female

DRUGS (4)
  1. TOUJEO [Suspect]
     Active Substance: INSULIN GLARGINE
     Dosage: DOSE:75 UNIT(S)
     Route: 051
     Dates: start: 2017
  2. TOUJEO [Suspect]
     Active Substance: INSULIN GLARGINE
     Dosage: DOSE:65 UNIT(S)
     Route: 051
     Dates: end: 2017
  3. SOLOSTAR [Suspect]
     Active Substance: DEVICE
     Dates: end: 2017
  4. SOLOSTAR [Suspect]
     Active Substance: DEVICE
     Dates: start: 2017

REACTIONS (1)
  - Blood glucose increased [Unknown]
